FAERS Safety Report 5932435-X (Version None)
Quarter: 2008Q4

REPORT INFORMATION
  Report Type: 
  Country: None (occurrence: None)
  Receive Date: 20081009
  Receipt Date: 20071015
  Transmission Date: 20090506
  Serious: Yes (Hospitalization, Other)
  Sender: FDA-Public Use
  Company Number: PHEH2007US12527

PATIENT
  Age: 71 Year
  Sex: Male

DRUGS (8)
  1. ZOMETA [Suspect]
     Dosage: INTRAVENOUS
     Route: 042
     Dates: start: 20070718, end: 20070718
  2. REVLIMID [Suspect]
     Indication: MULTIPLE MYELOMA
     Dosage: 25 MG, QD, ORAL ; 25MG, Q 3RD DAY, ORAL ; 10MG, QD, ORAL
     Route: 048
     Dates: start: 20070719, end: 20070730
  3. REVLIMID [Suspect]
     Indication: MULTIPLE MYELOMA
     Dosage: 25 MG, QD, ORAL ; 25MG, Q 3RD DAY, ORAL ; 10MG, QD, ORAL
     Route: 048
     Dates: start: 20070821, end: 20070830
  4. REVLIMID [Suspect]
     Indication: MULTIPLE MYELOMA
     Dosage: 25 MG, QD, ORAL ; 25MG, Q 3RD DAY, ORAL ; 10MG, QD, ORAL
     Route: 048
     Dates: start: 20070830
  5. CALCITROL (CALCIUM CARBONATE, ERGOCALCIFEROL, RETINOL) [Concomitant]
  6. PERCOCET [Concomitant]
  7. VALIUM [Concomitant]
  8. VITAMIN D [Concomitant]

REACTIONS (6)
  - BLOOD CALCIUM DECREASED [None]
  - MUSCLE SPASMS [None]
  - PAIN [None]
  - RASH PAPULAR [None]
  - RENAL DISORDER [None]
  - TRISMUS [None]
